FAERS Safety Report 24369228 (Version 4)
Quarter: 2024Q4

REPORT INFORMATION
  Report Type: Spontaneous
  Country: US (occurrence: US)
  Receive Date: 20240927
  Receipt Date: 20241218
  Transmission Date: 20250115
  Serious: No
  Sender: SANOFI AVENTIS
  Company Number: US-SA-2024SA273636

PATIENT
  Age: 1 Year
  Sex: Male
  Weight: 12.9 kg

DRUGS (2)
  1. DUPIXENT [Suspect]
     Active Substance: DUPILUMAB
     Indication: Dermatitis atopic
     Dosage: 200 MG, Q4W
     Route: 058
  2. DUPIXENT [Suspect]
     Active Substance: DUPILUMAB
     Dosage: 300 MG, Q4W
     Route: 058

REACTIONS (17)
  - Skin haemorrhage [Unknown]
  - Skin fissures [Unknown]
  - Dry skin [Unknown]
  - Vomiting [Recovered/Resolved]
  - Injection site discolouration [Unknown]
  - Rash papular [Unknown]
  - Scab [Unknown]
  - Pruritus [Unknown]
  - Eye swelling [Unknown]
  - Ocular hyperaemia [Recovered/Resolved]
  - Skin exfoliation [Unknown]
  - Eye pruritus [Unknown]
  - Influenza [Unknown]
  - Eczema [Unknown]
  - Off label use [Unknown]
  - Therapeutic response shortened [Unknown]
  - Inappropriate schedule of product administration [Unknown]

NARRATIVE: CASE EVENT DATE: 20240101
